FAERS Safety Report 6295812-6 (Version None)
Quarter: 2009Q3

REPORT INFORMATION
  Report Type: 
  Country: None (occurrence: None)
  Receive Date: 20090804
  Receipt Date: 20090723
  Transmission Date: 20100115
  Serious: Yes (Other)
  Sender: FDA-Public Use
  Company Number: DE-ELI_LILLY_AND_COMPANY-DE200907005303

PATIENT
  Sex: Female
  Weight: 78 kg

DRUGS (2)
  1. SOMATROPIN [Suspect]
     Dosage: 0.2 MG, UNKNOWN
     Dates: start: 20031209, end: 20071115
  2. HYDROCORTISONE [Concomitant]
     Indication: HYPOPITUITARISM
     Dosage: 10-5-0
     Dates: start: 20020101

REACTIONS (1)
  - PITUITARY TUMOUR BENIGN [None]
